FAERS Safety Report 8625995-1 (Version None)
Quarter: 2012Q3

REPORT INFORMATION
  Report Type: 
  Country: None (occurrence: None)
  Receive Date: 20120827
  Receipt Date: 20120817
  Transmission Date: 20120928
  Serious: Yes (Other)
  Sender: FDA-Public Use
  Company Number: FR-ROCHE-1105612

PATIENT
  Sex: Male

DRUGS (5)
  1. LUCENTIS [Suspect]
     Route: 050
     Dates: start: 20100501
  2. LUCENTIS [Suspect]
     Route: 050
     Dates: start: 20100730
  3. LUCENTIS [Suspect]
     Indication: AGE-RELATED MACULAR DEGENERATION
     Route: 050
     Dates: start: 20100301
  4. LUCENTIS [Suspect]
     Route: 050
     Dates: start: 20100401
  5. LUCENTIS [Suspect]
     Route: 050
     Dates: start: 20110120

REACTIONS (1)
  - AGE-RELATED MACULAR DEGENERATION [None]
